FAERS Safety Report 4598492-0 (Version None)
Quarter: 2005Q1

REPORT INFORMATION
  Report Type: 
  Country: None (occurrence: None)
  Receive Date: 20050303
  Receipt Date: 20050303
  Transmission Date: 20050727
  Serious: No
  Sender: FDA-Public Use
  Company Number: None

PATIENT
  Sex: Female
  Weight: 56.6996 kg

DRUGS (2)
  1. MAALOX TOTAL STOMACH RELIEF    525 MG/  30 ML     NOVARTIS [Suspect]
     Indication: STOMACH DISCOMFORT
     Dosage: 30 ML    ONCE    ORAL
     Route: 048
     Dates: start: 20041115, end: 20041115
  2. PRENATAL VITAMINS [Concomitant]

REACTIONS (2)
  - DRUG EXPOSURE DURING PREGNANCY [None]
  - MEDICATION ERROR [None]
